FAERS Safety Report 21173833 (Version 1)
Quarter: 2022Q3

REPORT INFORMATION
  Report Type: Spontaneous
  Country: US (occurrence: US)
  Receive Date: 20220804
  Receipt Date: 20220804
  Transmission Date: 20221027
  Serious: No
  Sender: FDA-Public Use
  Company Number: US-PERRIGO-22US006293

PATIENT
  Sex: Male

DRUGS (2)
  1. LORATADINE [Suspect]
     Active Substance: LORATADINE
     Indication: Product used for unknown indication
     Dosage: 10 MG, QD
     Route: 048
     Dates: start: 2022, end: 2022
  2. LORATADINE [Suspect]
     Active Substance: LORATADINE
     Dosage: 1/2 TABLET, Q 12HRS
     Route: 048
     Dates: start: 2022

REACTIONS (4)
  - Therapeutic product effect incomplete [Unknown]
  - Underdose [Unknown]
  - Inappropriate schedule of product administration [Unknown]
  - Wrong technique in product usage process [Unknown]

NARRATIVE: CASE EVENT DATE: 20220101
